FAERS Safety Report 5927424-5 (Version None)
Quarter: 2008Q4

REPORT INFORMATION
  Report Type: 
  Country: None (occurrence: None)
  Receive Date: 20081022
  Receipt Date: 20081022
  Transmission Date: 20090506
  Serious: Yes (Other)
  Sender: FDA-Public Use
  Company Number: None

PATIENT
  Sex: Female

DRUGS (2)
  1. VERAPAMIL [Suspect]
     Indication: MIGRAINE WITH AURA
     Dosage: 40 MG TID PO
     Route: 048
     Dates: start: 20080514
  2. VERAPAMIL [Suspect]
     Indication: PUPILS UNEQUAL
     Dosage: 40 MG TID PO
     Route: 048
     Dates: start: 20080514

REACTIONS (5)
  - ALTERED VISUAL DEPTH PERCEPTION [None]
  - DRUG INEFFECTIVE [None]
  - MIGRAINE WITH AURA [None]
  - MYDRIASIS [None]
  - VISION BLURRED [None]
